FAERS Safety Report 8552516-4 (Version None)
Quarter: 2012Q3

REPORT INFORMATION
  Report Type: 
  Country: None (occurrence: None)
  Receive Date: 20120731
  Receipt Date: 20120720
  Transmission Date: 20120928
  Serious: Yes (Other)
  Sender: FDA-Public Use
  Company Number: US-JNJFOC-20120713945

PATIENT
  Age: 54 Year
  Sex: Female
  Weight: 117 kg

DRUGS (12)
  1. EFFEXOR XR [Suspect]
     Indication: DEPRESSION SUICIDAL
     Dosage: DAILY IN THE MORNING
     Route: 048
     Dates: start: 20080101
  2. SOMA [Concomitant]
     Indication: FIBROMYALGIA
     Route: 065
  3. IBUPROFEN [Suspect]
     Indication: HEADACHE
     Dosage: 800 MG OR 1000 MG, 4 TIMES A DAY
     Route: 065
  4. TYLENOL (CAPLET) [Suspect]
     Indication: HEADACHE
     Route: 065
  5. XANAX [Suspect]
     Indication: MENTAL DISORDER
     Dosage: 0.5 MG IN THE EVENING FOR SLOWING HER MIND AND 1 MG AT NIGHT FOR SLEEP
     Route: 065
  6. ACETYLSALICYLIC ACID SRT [Suspect]
     Indication: BLOOD CHOLESTEROL INCREASED
     Route: 065
  7. EFFEXOR XR [Suspect]
     Route: 048
     Dates: start: 20000101
  8. XANAX [Suspect]
     Indication: SLEEP DISORDER THERAPY
     Dosage: 0.5 MG IN THE EVENING FOR SLOWING HER MIND AND 1 MG AT NIGHT FOR SLEEP
     Route: 065
  9. TRAZODONE HYDROCHLORIDE [Suspect]
     Indication: SLEEP DISORDER THERAPY
     Route: 065
  10. TYLENOL (CAPLET) [Suspect]
     Route: 065
  11. VENLAFAXINE HCL [Suspect]
     Indication: DEPRESSION SUICIDAL
     Route: 065
  12. NIASPAN [Suspect]
     Indication: BLOOD CHOLESTEROL INCREASED
     Route: 048
     Dates: start: 20120101

REACTIONS (10)
  - DRUG INEFFECTIVE [None]
  - OVERDOSE [None]
  - ANXIETY [None]
  - PRURITUS [None]
  - BLOOD CHOLESTEROL INCREASED [None]
  - FLUSHING [None]
  - PARAESTHESIA [None]
  - INSOMNIA [None]
  - HEAD DISCOMFORT [None]
  - FRUSTRATION [None]
